FAERS Safety Report 20855822 (Version 1)
Quarter: 2022Q2

REPORT INFORMATION
  Report Type: Spontaneous
  Country: US (occurrence: US)
  Receive Date: 20220520
  Receipt Date: 20220520
  Transmission Date: 20220721
  Serious: No
  Sender: FDA-Public Use
  Company Number: US-TEVA-2022-US-2035633

PATIENT
  Age: 60 Year
  Sex: Female

DRUGS (4)
  1. ESTRADIOL [Suspect]
     Active Substance: ESTRADIOL
     Indication: Atrophic vulvovaginitis
     Route: 067
  2. ESTRADIOL [Suspect]
     Active Substance: ESTRADIOL
     Route: 067
  3. LOSARTAN POTASSIUM [Concomitant]
     Active Substance: LOSARTAN POTASSIUM
     Route: 065
  4. GABAPENTIN [Concomitant]
     Active Substance: GABAPENTIN
     Route: 065

REACTIONS (5)
  - Product package associated injury [Unknown]
  - Wound haemorrhage [Unknown]
  - Emotional distress [Unknown]
  - Nervousness [Unknown]
  - Product packaging issue [Unknown]
